FAERS Safety Report 16804022 (Version 1)
Quarter: 2019Q3

REPORT INFORMATION
  Report Type: Spontaneous
  Country: GB (occurrence: GB)
  Receive Date: 20190913
  Receipt Date: 20190913
  Transmission Date: 20191005
  Serious: Yes (Other)
  Sender: FDA-Public Use
  Company Number: GB-TEVA-2019-GB-1106251

PATIENT
  Sex: Female

DRUGS (4)
  1. METFORMIN [Concomitant]
     Active Substance: METFORMIN HYDROCHLORIDE
  2. ASTHMA INHALERS [Concomitant]
  3. CHOLESTEROL MEDICINES [Concomitant]
  4. ESOMEPRAZOLE. [Suspect]
     Active Substance: ESOMEPRAZOLE MAGNESIUM
     Indication: HIATUS HERNIA
     Dosage: 80 MILLIGRAM DAILY;
     Route: 048
     Dates: start: 1995

REACTIONS (4)
  - Malaise [Recovered/Resolved]
  - Throat tightness [Recovered/Resolved]
  - Asthma [Recovered/Resolved]
  - Product substitution issue [Unknown]
